FAERS Safety Report 7907378-2 (Version None)
Quarter: 2011Q4

REPORT INFORMATION
  Report Type: 
  Country: None (occurrence: None)
  Receive Date: 20111110
  Receipt Date: 20111028
  Transmission Date: 20120403
  Serious: Yes (Hospitalization)
  Sender: FDA-Public Use
  Company Number: AU-MYLANLABS-2011S1022752

PATIENT
  Age: 35 Year
  Sex: Male

DRUGS (3)
  1. TESTOSTERONE [Concomitant]
     Dosage: EVERY 2 WEEKS
     Route: 030
  2. SPIRONOLACTONE [Suspect]
     Route: 065
  3. LIOTHYRONINE SODIUM [Concomitant]
     Dosage: DAILY
     Route: 065

REACTIONS (3)
  - HYPERKALAEMIA [None]
  - RHABDOMYOLYSIS [None]
  - WATER INTOXICATION [None]
